FAERS Safety Report 14474204 (Version 2)
Quarter: 2019Q1

REPORT INFORMATION
  Report Type: Spontaneous
  Country: IT (occurrence: IT)
  Receive Date: 20180201
  Receipt Date: 20190228
  Transmission Date: 20190417
  Serious: Yes (Other)
  Sender: FDA-Public Use
  Company Number: IT-LUPIN PHARMACEUTICALS INC.-2018-00437

PATIENT
  Age: 8 Year
  Sex: Female
  Weight: 29 kg

DRUGS (3)
  1. MEMANTINE. [Suspect]
     Active Substance: MEMANTINE
     Dosage: 2.5 MG, QD
     Route: 065
  2. MEMANTINE. [Suspect]
     Active Substance: MEMANTINE
     Indication: GENE MUTATION
     Dosage: 2 MG, QD
     Route: 065
  3. MEMANTINE. [Suspect]
     Active Substance: MEMANTINE
     Dosage: 2 MG, QD
     Route: 065

REACTIONS (3)
  - Psychomotor hyperactivity [Unknown]
  - Anxiety [Unknown]
  - Psychotic disorder [Unknown]
